FAERS Safety Report 16285990 (Version 5)
Quarter: 2019Q4

REPORT INFORMATION
  Report Type: Spontaneous
  Country: US (occurrence: US)
  Receive Date: 20190508
  Receipt Date: 20191202
  Transmission Date: 20200122
  Serious: No
  Sender: FDA-Public Use
  Company Number: US-PFIZER INC-2019192989

PATIENT
  Age: 51 Year
  Sex: Female
  Weight: 63.49 kg

DRUGS (1)
  1. PRISTIQ EXTENDED-RELEASE [Suspect]
     Active Substance: DESVENLAFAXINE SUCCINATE
     Dosage: 50 MG, UNK
     Dates: end: 2019

REACTIONS (6)
  - Thyroid disorder [Unknown]
  - Emphysema [Unknown]
  - Depression [Unknown]
  - Malaise [Unknown]
  - Dehydration [Unknown]
  - Influenza [Unknown]
